FAERS Safety Report 5787193-9 (Version None)
Quarter: 2008Q2

REPORT INFORMATION
  Report Type: 
  Country: None (occurrence: None)
  Receive Date: 20080625
  Receipt Date: 20070823
  Transmission Date: 20081010
  Serious: No
  Sender: FDA-Public Use
  Company Number: US-ASTRAZENECA-2007UW20214

PATIENT
  Age: 52 Year
  Sex: Female
  Weight: 81.6 kg

DRUGS (7)
  1. PULMICORT FLEXHALER [Suspect]
     Indication: ASTHMA
     Route: 055
  2. CELEBREX [Concomitant]
  3. GABAPENTIN [Concomitant]
  4. THEOPHYLLINE [Concomitant]
  5. PULMICORT [Concomitant]
     Route: 055
  6. PREDNISONE TAB [Concomitant]
  7. ALBUTEROL [Concomitant]

REACTIONS (1)
  - CHEST DISCOMFORT [None]
